FAERS Safety Report 8119399-8 (Version None)
Quarter: 2012Q1

REPORT INFORMATION
  Report Type: 
  Country: None (occurrence: None)
  Receive Date: 20120203
  Receipt Date: 20120123
  Transmission Date: 20120608
  Serious: Yes (Other)
  Sender: FDA-Public Use
  Company Number: A0963808A

PATIENT
  Age: 40 Year
  Sex: Female

DRUGS (2)
  1. BUPROPION HYDROCHLORIDE [Suspect]
     Dosage: 100 MG, THREE TIMES PER DAY
  2. IBUPROFEN [Concomitant]

REACTIONS (3)
  - CHOROIDAL EFFUSION [None]
  - ANGLE CLOSURE GLAUCOMA [None]
  - VISION BLURRED [None]
